FAERS Safety Report 9519790 (Version 1)
Quarter: 2013Q1

REPORT INFORMATION
  Report Type: Spontaneous
  Country: US (occurrence: None)
  Receive Date: 20130305
  Receipt Date: 20130305
  Transmission Date: 20140127
  Serious: Yes (Hospitalization)
  Sender: FDA-Public Use
  Company Number: 163-21880-12012314

PATIENT
  Age: 61 Year
  Sex: Male

DRUGS (12)
  1. REVLIMID [Suspect]
     Indication: PLASMA CELL MYELOMA
     Dosage: 25 MG, OD X 21 DAYS/OFF 7, PO
     Route: 048
     Dates: start: 20120113, end: 20120120
  2. AMBIEN CR (ZOLPIDEM TARTRATE) (UNKNOWN) [Concomitant]
  3. SENEKOT (SENNA) (UNKNOWN) [Concomitant]
  4. DEXAMETHASONE (DEXAMETHASONE) (UNKNOWN) [Concomitant]
  5. VELCADE [Concomitant]
  6. MEGESTROL (MEGESTROL) (UNKNOWN) [Concomitant]
  7. CIPROFLOXACIN (CIPROFLOXACIN) (UNKNOWN) [Concomitant]
  8. OXYCODONE (OXYCODONE) (UNKNOWN) (OXYCODONE) [Concomitant]
  9. FLOMAX (TAMSULOSIN) (UNKNOWN) [Concomitant]
  10. FISH OIL (FISH OIL) (UNKNOWN) [Concomitant]
  11. OXYCONTIN (OXYCODONE HYDROCHLORIDE) (UNKNOWN) [Concomitant]
  12. DOCUSATE (DOCUSATE) (UNKNOWN) [Concomitant]

REACTIONS (8)
  - Dyspnoea [None]
  - Dizziness [None]
  - Vision blurred [None]
  - Decreased appetite [None]
  - Dehydration [None]
  - Constipation [None]
  - Pyrexia [None]
  - Full blood count decreased [None]
